FAERS Safety Report 17358706 (Version 2)
Quarter: 2022Q3

REPORT INFORMATION
  Report Type: Report from Study
  Country: DE (occurrence: DE)
  Receive Date: 20200201
  Receipt Date: 20220922
  Transmission Date: 20221026
  Serious: Yes (Other)
  Sender: FDA-Public Use
  Company Number: DE-NOVARTISPH-PHHY2019DE056173

PATIENT
  Sex: Male

DRUGS (8)
  1. GILENYA [Suspect]
     Active Substance: FINGOLIMOD HYDROCHLORIDE
     Indication: Multiple sclerosis
     Dosage: 0.5 MG, UNK
     Route: 048
     Dates: start: 20170822
  2. PANTOPRAZOLE SODIUM [Concomitant]
     Active Substance: PANTOPRAZOLE SODIUM
     Indication: Prophylaxis against gastrointestinal ulcer
     Dosage: AS NEEDED
     Route: 065
     Dates: start: 20170815
  3. CHOLECALCIFEROL [Concomitant]
     Active Substance: CHOLECALCIFEROL
     Indication: Vitamin D deficiency
     Dosage: 20.000 IU, QW
     Route: 065
     Dates: start: 20140314, end: 20190725
  4. CHOLECALCIFEROL [Concomitant]
     Active Substance: CHOLECALCIFEROL
     Dosage: 20 IU, QMO
     Route: 065
     Dates: start: 20190725
  5. DIMETHYLPOLYSILOXANE [Concomitant]
     Indication: Proctitis ulcerative
     Dosage: UNK
     Route: 065
     Dates: start: 20160315
  6. MESALAMINE [Concomitant]
     Active Substance: MESALAMINE
     Indication: Proctitis ulcerative
     Dosage: 1 G, TID
     Route: 065
     Dates: start: 20150624
  7. PREDNISOLONE [Concomitant]
     Active Substance: PREDNISOLONE
     Indication: Colitis ulcerative
     Dosage: UNK
     Route: 065
     Dates: start: 20170815
  8. SIMETHICONE (DIMETHICONE) [Concomitant]
     Active Substance: DIMETHICONE
     Indication: Colitis ulcerative
     Dosage: UNK
     Route: 065
     Dates: start: 20170815

REACTIONS (5)
  - Heart rate increased [Unknown]
  - Infection [Not Recovered/Not Resolved]
  - Back pain [Unknown]
  - Spondylitis [Unknown]
  - Heart rate increased [Recovered/Resolved]

NARRATIVE: CASE EVENT DATE: 20180707
